FAERS Safety Report 7910723-5 (Version None)
Quarter: 2011Q4

REPORT INFORMATION
  Report Type: 
  Country: None (occurrence: None)
  Receive Date: 20111111
  Receipt Date: 20111028
  Transmission Date: 20120403
  Serious: Yes (Hospitalization)
  Sender: FDA-Public Use
  Company Number: PHHO2011GB17728

PATIENT
  Sex: Female
  Weight: 64.6 kg

DRUGS (3)
  1. TASIGNA [Suspect]
     Indication: CHRONIC MYELOID LEUKAEMIA
     Dosage: 300 MG, BID
     Route: 048
     Dates: start: 20110408
  2. SIMVASTATIN [Suspect]
     Indication: BLOOD CHOLESTEROL INCREASED
     Dosage: UNK
     Route: 048
     Dates: start: 20110812, end: 20111014
  3. METFORMIN HCL [Concomitant]
     Indication: DIABETES MELLITUS
     Dosage: UNK
     Route: 048
     Dates: start: 20110515

REACTIONS (1)
  - BLOOD CREATINE PHOSPHOKINASE INCREASED [None]
